FAERS Safety Report 10261044 (Version 1)
Quarter: 2014Q2

REPORT INFORMATION
  Report Type: Spontaneous
  Country: DE (occurrence: DE)
  Receive Date: 20140626
  Receipt Date: 20140626
  Transmission Date: 20141212
  Serious: Yes (Other)
  Sender: FDA-Public Use
  Company Number: DE-DRREDDYS-GER/GER/14/0041302

PATIENT
  Age: 37 Year
  Sex: Female

DRUGS (2)
  1. OLANZAPINE [Suspect]
     Indication: ANXIETY DISORDER
     Dosage: 5 MG PER DAY
     Route: 048
     Dates: start: 20120803, end: 20130424
  2. CEFUROXIM [Concomitant]
     Indication: INFECTION PROPHYLAXIS
     Route: 046

REACTIONS (3)
  - Obstructed labour [Unknown]
  - Caesarean section [Unknown]
  - Exposure during pregnancy [Unknown]
